FAERS Safety Report 8586121-0 (Version None)
Quarter: 2012Q3

REPORT INFORMATION
  Report Type: 
  Country: None (occurrence: None)
  Receive Date: 20120810
  Receipt Date: 20120803
  Transmission Date: 20120928
  Serious: Yes (Death, Hospitalization, Disabling, Other)
  Sender: FDA-Public Use
  Company Number: FR-PFIZER INC-2012109714

PATIENT
  Age: 74 Year
  Sex: Male
  Weight: 85 kg

DRUGS (7)
  1. PREDNISOLONE [Concomitant]
     Indication: HEADACHE
     Dosage: 80 MG, 1X/DAY
     Route: 048
     Dates: start: 20120320
  2. TORISEL [Suspect]
     Dosage: 25 MG, WEEKLY
     Dates: end: 20120510
  3. KEPPRA [Concomitant]
     Indication: EPILEPSY
     Dosage: 1000 MG, 2X/DAY
     Route: 048
     Dates: start: 20120320
  4. CLOBAZAM [Concomitant]
     Indication: ANXIETY
     Dosage: 5 MG, 1X/DAY
     Route: 048
     Dates: start: 20120320, end: 20120502
  5. RABEPRAZOLE SODIUM [Concomitant]
     Indication: GASTRITIS PROPHYLAXIS
     Dosage: 10 MG, 1X/DAY
     Route: 048
     Dates: start: 20120320
  6. TORISEL [Suspect]
     Indication: GLIOBLASTOMA
     Dosage: 25 MG, WEEKLY
     Route: 042
     Dates: start: 20120412, end: 20120419
  7. ESCITALOPRAM [Concomitant]
     Indication: DEPRESSION
     Dosage: 10 MG, 1X/DAY
     Route: 048
     Dates: start: 20120418

REACTIONS (3)
  - HYDROCEPHALUS [None]
  - DEATH [None]
  - DEPRESSED LEVEL OF CONSCIOUSNESS [None]
